FAERS Safety Report 24265257 (Version 4)
Quarter: 2024Q4

REPORT INFORMATION
  Report Type: Spontaneous
  Country: US (occurrence: US)
  Receive Date: 20240829
  Receipt Date: 20241114
  Transmission Date: 20250114
  Serious: No
  Sender: VERTEX
  Company Number: US-VERTEX PHARMACEUTICALS-2024-013661

PATIENT
  Age: 5 Year
  Sex: Female

DRUGS (4)
  1. TRIKAFTA [Suspect]
     Active Substance: ELEXACAFTOR\IVACAFTOR\TEZACAFTOR
     Indication: Cystic fibrosis
     Dosage: MORNING DOSE IN AM, NIGHT DOSE IN PM
     Route: 048
  2. TRIKAFTA [Suspect]
     Active Substance: ELEXACAFTOR\IVACAFTOR\TEZACAFTOR
     Dosage: MORNING DOSE IN PM, NIGHT DOSE IN AM
     Route: 048
  3. TRIKAFTA [Suspect]
     Active Substance: ELEXACAFTOR\IVACAFTOR\TEZACAFTOR
     Dosage: ELIMINATE NIGHT DOSE AND GIVE MORNING DOSE
     Route: 048
  4. TRIKAFTA [Suspect]
     Active Substance: ELEXACAFTOR\IVACAFTOR\TEZACAFTOR
     Dosage: ONLY TAKE AM DOSE IN PM
     Route: 048

REACTIONS (11)
  - Gastrointestinal disorder [Recovering/Resolving]
  - Fatigue [Recovering/Resolving]
  - Irritability [Recovering/Resolving]
  - Insomnia [Recovered/Resolved]
  - Feeling abnormal [Recovering/Resolving]
  - Screaming [Recovering/Resolving]
  - Anger [Recovering/Resolving]
  - Mood swings [Recovering/Resolving]
  - Disturbance in attention [Unknown]
  - Anxiety [Recovering/Resolving]
  - General physical health deterioration [Unknown]
